FAERS Safety Report 7083209-0 (Version None)
Quarter: 2010Q4

REPORT INFORMATION
  Report Type: 
  Country: None (occurrence: None)
  Receive Date: 20101104
  Receipt Date: 20090223
  Transmission Date: 20110411
  Serious: No
  Sender: FDA-Public Use
  Company Number: US-KINGPHARMUSA00001-K200900190

PATIENT
  Age: 51 Year
  Sex: Female
  Weight: 58.957 kg

DRUGS (2)
  1. FLECTOR [Suspect]
     Indication: TENDONITIS
     Dosage: 1 PATCH, BID
     Route: 061
     Dates: start: 20090115, end: 20090101
  2. TAMOXIFEN CITRATE [Concomitant]
     Indication: BREAST CANCER
     Dosage: UNK

REACTIONS (1)
  - OEDEMA PERIPHERAL [None]
